FAERS Safety Report 7156606-2 (Version None)
Quarter: 2010Q4

REPORT INFORMATION
  Report Type: 
  Country: None (occurrence: None)
  Receive Date: 20101214
  Receipt Date: 20100825
  Transmission Date: 20110411
  Serious: No
  Sender: FDA-Public Use
  Company Number: US-ASTRAZENECA-2009SE23087

PATIENT
  Age: 83 Year
  Sex: Female
  Weight: 56.7 kg

DRUGS (3)
  1. CRESTOR [Suspect]
     Route: 048
     Dates: start: 20080701, end: 20080901
  2. HTN MEDICATION [Concomitant]
  3. TEMAZEPAM [Concomitant]
     Indication: SLEEP DISORDER

REACTIONS (5)
  - ASTHENIA [None]
  - BALANCE DISORDER [None]
  - FALL [None]
  - MUSCULAR WEAKNESS [None]
  - WALKING AID USER [None]
